FAERS Safety Report 14738962 (Version 1)
Quarter: 2018Q2

REPORT INFORMATION
  Report Type: Other
  Country: FR (occurrence: FR)
  Receive Date: 20180410
  Receipt Date: 20180410
  Transmission Date: 20180711
  Serious: Yes (Hospitalization)
  Sender: FDA-Public Use
  Company Number: FR-DENTSPLY-2018SCDP000037

PATIENT
  Age: 91 Year
  Sex: Male
  Weight: 72 kg

DRUGS (7)
  1. XYLOCAINE DENTAL (LIDOCAINE HCL INJECTION), USP 2% [Suspect]
     Active Substance: EPINEPHRINE\LIDOCAINE
     Indication: LOCAL ANAESTHESIA
     Dosage: UNK
     Route: 058
     Dates: start: 20150507, end: 20150507
  2. CHLORAMINOPHENE [Suspect]
     Active Substance: CHLORAMBUCIL
     Indication: CHRONIC LYMPHOCYTIC LEUKAEMIA
     Dosage: 2 MG, QD
     Route: 048
     Dates: start: 2012, end: 20150526
  3. PARACETAMOL [Suspect]
     Active Substance: ACETAMINOPHEN
     Indication: ANALGESIC THERAPY
     Dosage: 1 G, UNK
     Route: 042
     Dates: start: 20150507, end: 20150507
  4. DROPERIDOL. [Suspect]
     Active Substance: DROPERIDOL
     Indication: NAUSEA
     Dosage: 1.25 MG, UNK
     Route: 042
     Dates: start: 20150507, end: 20150507
  5. PERMIXON [Suspect]
     Active Substance: HERBALS\SAW PALMETTO
     Indication: BENIGN PROSTATIC HYPERPLASIA
     Dosage: 2 DF, QD
     Route: 048
     Dates: start: 201411, end: 20150526
  6. EPHEDRINE. [Suspect]
     Active Substance: EPHEDRINE
     Indication: HYPOTENSION
     Dosage: 9 MG, UNK
     Route: 042
     Dates: start: 20150507, end: 20150507
  7. REMIFENTANIL [Suspect]
     Active Substance: REMIFENTANIL
     Indication: ANAESTHESIA
     Dosage: 6.61 ML, UNK
     Route: 042
     Dates: start: 20150507, end: 20150507

REACTIONS (2)
  - Agranulocytosis [Recovered/Resolved]
  - Rash [Unknown]

NARRATIVE: CASE EVENT DATE: 201505
